FAERS Safety Report 8419785-2 (Version None)
Quarter: 2012Q2

REPORT INFORMATION
  Report Type: 
  Country: None (occurrence: None)
  Receive Date: 20120607
  Receipt Date: 20120529
  Transmission Date: 20120825
  Serious: No
  Sender: FDA-Public Use
  Company Number: US-B.I. PHARMACEUTICALS,INC./RIDGEFIELD-2012-BP-12584BP

PATIENT
  Sex: Female

DRUGS (4)
  1. BYSTOLIC [Concomitant]
  2. SPIRIVA [Suspect]
     Dosage: 18 MCG
     Route: 055
  3. LIPITOR [Concomitant]
     Dosage: 80 MG
     Route: 048
  4. WARFARIN SODIUM [Concomitant]

REACTIONS (2)
  - DYSPNOEA [None]
  - PAINFUL RESPIRATION [None]
